FAERS Safety Report 18202918 (Version 9)
Quarter: 2021Q4

REPORT INFORMATION
  Report Type: Report from Study
  Country: DE (occurrence: DE)
  Receive Date: 20200827
  Receipt Date: 20211207
  Transmission Date: 20220303
  Serious: Yes (Hospitalization)
  Sender: FDA-Public Use
  Company Number: NVSC2020DE232269

PATIENT
  Sex: Female
  Weight: 87.3 kg

DRUGS (11)
  1. KISQALI [Suspect]
     Active Substance: RIBOCICLIB
     Indication: Breast cancer metastatic
     Dosage: 600 MG (SCHEMA 21 DAYS INTAKE, 7 DAYS PAUSE)
     Route: 048
     Dates: start: 20200615, end: 20200717
  2. ANASTROZOLE [Suspect]
     Active Substance: ANASTROZOLE
     Indication: Breast cancer metastatic
     Dosage: 1 MG, QD
     Route: 048
     Dates: start: 20200522, end: 20200717
  3. MELPERONE [Concomitant]
     Active Substance: MELPERONE
     Indication: Restlessness
     Dosage: 25 MG, QD (ONCE IN THE EVENTING)
     Route: 048
     Dates: start: 2016
  4. MELPERONE [Concomitant]
     Active Substance: MELPERONE
     Indication: Tension
  5. MOCLOBEMIDE [Concomitant]
     Active Substance: MOCLOBEMIDE
     Indication: Depression
     Dosage: 300 MG, QD (ONCE IN THE MORNING)
     Route: 065
     Dates: start: 2000
  6. BISOPROLOL [Concomitant]
     Active Substance: BISOPROLOL
     Indication: Hypertension
     Dosage: 2.5 MG, QD (ONCE IN THE MORNING)
     Route: 048
     Dates: start: 2010
  7. XGEVA [Concomitant]
     Active Substance: DENOSUMAB
     Indication: Breast cancer metastatic
     Dosage: 120 MG, 4W (FOUR TIMES WEEKLY)
     Route: 065
     Dates: start: 20200709
  8. CALCIUM CARBONATE [Concomitant]
     Active Substance: CALCIUM CARBONATE
     Indication: Calcium deficiency
     Dosage: 500 MG (TWICE IN THE MORNING)
     Route: 048
     Dates: start: 20200709
  9. PANTOPRAZOLE SODIUM [Concomitant]
     Active Substance: PANTOPRAZOLE SODIUM
     Indication: Diarrhoea
     Dosage: 40 MG, QD (ONCE IN THE MORNING)
     Route: 048
     Dates: start: 20200709, end: 202009
  10. PANTOPRAZOLE SODIUM [Concomitant]
     Active Substance: PANTOPRAZOLE SODIUM
     Indication: Abdominal pain upper
     Dosage: 40 MG
     Route: 048
     Dates: start: 202009
  11. LOPERAMIDE [Concomitant]
     Active Substance: LOPERAMIDE
     Indication: Diarrhoea
     Dosage: 2 MG, QD (ONCE IN THE MORNING)
     Route: 048
     Dates: start: 20200709

REACTIONS (15)
  - Cholecystitis [Recovered/Resolved]
  - Urticaria [Recovered/Resolved]
  - Drug-induced liver injury [Recovered/Resolved]
  - Pruritus [Unknown]
  - Abdominal pain upper [Recovered/Resolved]
  - Fatigue [Unknown]
  - Chromaturia [Unknown]
  - Nausea [Unknown]
  - Gamma-glutamyltransferase increased [Unknown]
  - Alanine aminotransferase increased [Unknown]
  - Aspartate aminotransferase increased [Unknown]
  - Nephritis [Recovered/Resolved]
  - Skin ulcer [Not Recovered/Not Resolved]
  - Erythema [Not Recovered/Not Resolved]
  - Photopsia [Recovered/Resolved]

NARRATIVE: CASE EVENT DATE: 20200625
